FAERS Safety Report 9647349 (Version 2)
Quarter: 2013Q4

REPORT INFORMATION
  Report Type: Spontaneous
  Country: US (occurrence: US)
  Receive Date: 20131027
  Receipt Date: 20131027
  Transmission Date: 20140711
  Serious: No
  Sender: FDA-Public Use
  Company Number: US-PURDUE-USA-2013-0106460

PATIENT
  Age: 45 Year
  Sex: Female
  Weight: 88.44 kg

DRUGS (5)
  1. OXYCONTIN (NDA 22-272) [Suspect]
     Indication: BACK INJURY
     Dosage: 80 MG, QID
     Route: 048
     Dates: start: 200901
  2. OXYCONTIN (NDA 22-272) [Suspect]
     Indication: UNEVALUABLE EVENT
  3. OXYCONTIN (NDA 22-272) [Suspect]
     Indication: NECK INJURY
  4. OXYCODONE HCL IR CAPSULES [Concomitant]
     Indication: PRODUCT USED FOR UNKNOWN INDICATION
     Dosage: 30 MG, DAILY UP TO 6 TIMES PER DAY
     Route: 048
  5. ROXICODONE [Concomitant]
     Indication: PRODUCT USED FOR UNKNOWN INDICATION
     Dosage: 30 MG, UNK
     Route: 048

REACTIONS (1)
  - Mood altered [Not Recovered/Not Resolved]
